FAERS Safety Report 4804536-0 (Version None)
Quarter: 2005Q4

REPORT INFORMATION
  Report Type: 
  Country: None (occurrence: None)
  Receive Date: 20051017
  Receipt Date: 20051003
  Transmission Date: 20060501
  Serious: Yes (Hospitalization, Other)
  Sender: FDA-Public Use
  Company Number: FRWYE808407JUN04

PATIENT
  Age: 39 Year
  Sex: Female

DRUGS (4)
  1. ETHINYL ESTRADIOL AND LEVONORGESTREL [Suspect]
     Dosage: 1 TABLET 1X PER 1 DAY, ORAL
     Route: 048
     Dates: start: 20040110, end: 20040120
  2. PAROXETINE HCL [Suspect]
     Route: 048
  3. OMEPRAZOLE [Suspect]
     Route: 048
  4. TRILEPTAL [Suspect]
     Route: 048

REACTIONS (8)
  - ABDOMINAL PAIN [None]
  - ANTINUCLEAR ANTIBODY POSITIVE [None]
  - CHOLESTASIS [None]
  - HEPATIC SIDEROSIS [None]
  - HEPATIC STEATOSIS [None]
  - HEPATOMEGALY [None]
  - HYPOTENSION [None]
  - PERITONEAL EFFUSION [None]
